FAERS Safety Report 8167172-7 (Version None)
Quarter: 2012Q1

REPORT INFORMATION
  Report Type: 
  Country: None (occurrence: None)
  Receive Date: 20120227
  Receipt Date: 20120213
  Transmission Date: 20120608
  Serious: Yes (Hospitalization, Other)
  Sender: FDA-Public Use
  Company Number: US-ELI_LILLY_AND_COMPANY-US200910006806

PATIENT
  Sex: Female

DRUGS (5)
  1. ZOLOFT [Concomitant]
  2. COGENTIN [Concomitant]
  3. ZYPREXA [Suspect]
     Indication: PSYCHOTIC DISORDER
     Dosage: 15 MG, QD
     Route: 048
     Dates: start: 19990808
  4. TRAZODONE HCL [Concomitant]
  5. HALDOL [Concomitant]

REACTIONS (9)
  - SYNCOPE [None]
  - HYPERTENSION [None]
  - PANCREATIC CARCINOMA [None]
  - VAGINAL HAEMORRHAGE [None]
  - PANCREATITIS [None]
  - HYPERLIPIDAEMIA [None]
  - DIABETES MELLITUS [None]
  - CHEST PAIN [None]
  - HYPOGLYCAEMIA [None]
